FAERS Safety Report 5482469-7 (Version None)
Quarter: 2007Q4

REPORT INFORMATION
  Report Type: 
  Country: None (occurrence: None)
  Receive Date: 20071011
  Receipt Date: 20071003
  Transmission Date: 20080405
  Serious: Yes (Life-Threatening)
  Sender: FDA-Public Use
  Company Number: JP-ASTRAZENECA-2007SE04692

PATIENT
  Sex: Male
  Weight: 45 kg

DRUGS (6)
  1. CANDESARTAN CILEXETIL [Suspect]
     Indication: HYPERTENSION
     Route: 048
  2. CANDESARTAN CILEXETIL [Suspect]
     Route: 048
     Dates: start: 20070301, end: 20070406
  3. CANDESARTAN CILEXETIL [Suspect]
     Route: 048
     Dates: start: 20070425, end: 20070610
  4. CANDESARTAN CILEXETIL [Suspect]
     Route: 048
     Dates: start: 20070611, end: 20070828
  5. NORVASC [Concomitant]
     Route: 048
     Dates: end: 20070406
  6. CARBADOGEN [Concomitant]
     Route: 048
     Dates: end: 20070406

REACTIONS (2)
  - HYPERKALAEMIA [None]
  - RENAL FAILURE CHRONIC [None]
